FAERS Safety Report 13633091 (Version 1)
Quarter: 2017Q2

REPORT INFORMATION
  Report Type: Spontaneous
  Country: US (occurrence: US)
  Receive Date: 20170531
  Receipt Date: 20170531
  Transmission Date: 20170830
  Serious: No
  Sender: FDA-Public Use
  Company Number: US-ASTELLAS-1507739

PATIENT
  Age: 74 Year
  Sex: Female

DRUGS (6)
  1. OMEGA-3 ACIDS [Concomitant]
     Active Substance: OMEGA-3 FATTY ACIDS
  2. GLUCOSAMINE CHONDROITIN COMPLEX [Concomitant]
     Active Substance: CHONDROITIN SULFATE (BOVINE)\GLUCOSAMINE HYDROCHLORIDE
  3. TARCEVA [Suspect]
     Active Substance: ERLOTINIB HYDROCHLORIDE
     Indication: LUNG NEOPLASM MALIGNANT
     Route: 048
     Dates: start: 20141201
  4. TURMERIC [Concomitant]
     Active Substance: HERBALS\TURMERIC
  5. CALCIUM OROTATE [Concomitant]
     Active Substance: CALCIUM OROTATE
  6. ATELVIA [Concomitant]
     Active Substance: RISEDRONATE SODIUM

REACTIONS (2)
  - Nasal dryness [Unknown]
  - Dry skin [Unknown]

NARRATIVE: CASE EVENT DATE: 20141208
